FAERS Safety Report 9768310 (Version 2)
Quarter: 2014Q1

REPORT INFORMATION
  Report Type: Report from Study
  Country: JP (occurrence: JP)
  Receive Date: 20131217
  Receipt Date: 20140121
  Transmission Date: 20141002
  Serious: Yes (Hospitalization)
  Sender: FDA-Public Use
  Company Number: JP-TAKEDA-2013TJP003739

PATIENT
  Age: 57 Year
  Sex: Male

DRUGS (5)
  1. ALOGLIPTIN [Suspect]
     Indication: TYPE 2 DIABETES MELLITUS
     Dosage: 25 MG, QD
     Route: 048
     Dates: start: 20121004, end: 20130528
  2. ACTOS [Concomitant]
     Indication: TYPE 2 DIABETES MELLITUS
     Dosage: 30 MG, 1DAYS
     Route: 048
  3. METGLUCO [Concomitant]
     Indication: TYPE 2 DIABETES MELLITUS
     Dosage: 500 MG, 1 DAYS
     Route: 048
  4. AMARYL [Concomitant]
     Indication: TYPE 2 DIABETES MELLITUS
     Dosage: 1 MG, 1 DAYS
     Route: 048
  5. CRESTOR [Concomitant]
     Dosage: 5 MG, 1DAYS
     Route: 048
     Dates: end: 20130506

REACTIONS (1)
  - Gangrene [Recovering/Resolving]
